FAERS Safety Report 25413128 (Version 2)
Quarter: 2025Q4

REPORT INFORMATION
  Report Type: Spontaneous
  Country: EU (occurrence: EU)
  Receive Date: 20250609
  Receipt Date: 20251209
  Transmission Date: 20260118
  Serious: Yes (Hospitalization, Other)
  Sender: SANDOZ
  Company Number: EU-SANDOZ-SDZ2025DE039763

PATIENT
  Sex: Male

DRUGS (1)
  1. ERELZI [Suspect]
     Active Substance: ETANERCEPT-SZZS
     Indication: Psoriatic arthropathy
     Dosage: 50 MG
     Route: 065
     Dates: start: 20211116, end: 20220130

REACTIONS (4)
  - Syncope [Unknown]
  - Syncope [Unknown]
  - Dyspnoea exertional [Unknown]
  - Mycobacterial disease carrier [Unknown]

NARRATIVE: CASE EVENT DATE: 20230808
